FAERS Safety Report 4895150-X (Version None)
Quarter: 2006Q1

REPORT INFORMATION
  Report Type: 
  Country: None (occurrence: None)
  Receive Date: 20060130
  Receipt Date: 20060127
  Transmission Date: 20060701
  Serious: Yes (Death, Hospitalization)
  Sender: FDA-Public Use
  Company Number: JP-JNJFOC-20060101202

PATIENT
  Age: 66 Year
  Sex: Male

DRUGS (6)
  1. TAVANIC [Suspect]
     Route: 048
     Dates: start: 20051011, end: 20051019
  2. TAVANIC [Suspect]
     Indication: COUGH
     Route: 048
     Dates: start: 20051011, end: 20051019
  3. ZINNAT [Suspect]
     Route: 048
     Dates: start: 20051011, end: 20051023
  4. ZINNAT [Suspect]
     Indication: COUGH
     Route: 048
     Dates: start: 20051011, end: 20051023
  5. TRIFLUCAN [Suspect]
     Route: 048
  6. TRIFLUCAN [Suspect]
     Indication: CANDIDIASIS
     Route: 048

REACTIONS (7)
  - CEREBRAL HAEMORRHAGE [None]
  - EPISTAXIS [None]
  - HAEMATEMESIS [None]
  - HAEMATOCRIT DECREASED [None]
  - HAEMOPTYSIS [None]
  - PURPURA [None]
  - THROMBOCYTOPENIA [None]
